FAERS Safety Report 8157586-3 (Version None)
Quarter: 2012Q1

REPORT INFORMATION
  Report Type: 
  Country: None (occurrence: None)
  Receive Date: 20120222
  Receipt Date: 20110711
  Transmission Date: 20120608
  Serious: No
  Sender: FDA-Public Use
  Company Number: US-ASTRAZENECA-2011SE41493

PATIENT
  Age: 58 Year
  Sex: Female
  Weight: 88.5 kg

DRUGS (12)
  1. BUSPIRONE HCL [Concomitant]
     Indication: DEPRESSION
  2. SEROQUEL [Suspect]
     Indication: BIPOLAR DISORDER
     Route: 048
  3. ATENOLOL [Suspect]
     Indication: HYPERTENSION
  4. KLONOPIN [Concomitant]
     Indication: SLEEP DISORDER
  5. DETROL [Concomitant]
     Indication: HYPERTONIC BLADDER
  6. LITHIUM CARBONATE [Concomitant]
     Indication: BIPOLAR DISORDER
  7. SYNTHROID [Concomitant]
     Indication: HYPOTENSION
  8. BENAZEPRIL HYDROCHLORIDE [Concomitant]
     Indication: HYPERTENSION
  9. SIMVASTATIN [Concomitant]
     Indication: HYPERCHOLESTEROLAEMIA
  10. SEROQUEL [Suspect]
     Route: 048
     Dates: start: 20110705
  11. BUSPAR [Concomitant]
     Indication: ANXIETY
  12. ATENOLOL [Suspect]
     Dosage: 50 MGS IN HALF

REACTIONS (3)
  - BLOOD PRESSURE DECREASED [None]
  - WRONG TECHNIQUE IN DRUG USAGE PROCESS [None]
  - SOMNOLENCE [None]
